FAERS Safety Report 10853608 (Version 2)
Quarter: 2015Q1

REPORT INFORMATION
  Report Type: Spontaneous
  Country: CA (occurrence: CA)
  Receive Date: 20150223
  Receipt Date: 20150304
  Transmission Date: 20150721
  Serious: Yes (Other)
  Sender: FDA-Public Use
  Company Number: CA-JNJFOC-20150209540

PATIENT
  Age: 73 Year
  Sex: Female

DRUGS (9)
  1. TECTA [Concomitant]
     Active Substance: PANTOPRAZOLE MAGNESIUM
     Route: 065
  2. MICARDIS PLUS [Concomitant]
     Active Substance: HYDROCHLOROTHIAZIDE\TELMISARTAN
     Route: 065
  3. MELOXICAM. [Concomitant]
     Active Substance: MELOXICAM
     Route: 065
  4. ASA [Concomitant]
     Active Substance: ASPIRIN
     Route: 065
     Dates: start: 20150130
  5. XARELTO [Suspect]
     Active Substance: RIVAROXABAN
     Indication: KNEE ARTHROPLASTY
     Route: 048
     Dates: start: 20150130
  6. BABY ASPIRIN [Concomitant]
     Active Substance: ASPIRIN
     Route: 065
  7. TYLENOL [Concomitant]
     Active Substance: ACETAMINOPHEN
     Route: 065
  8. XARELTO [Suspect]
     Active Substance: RIVAROXABAN
     Indication: THROMBOSIS PROPHYLAXIS
     Route: 048
     Dates: start: 20150130
  9. IMOVANE [Concomitant]
     Active Substance: ZOPICLONE
     Dosage: 1/2 TABLET USED
     Route: 065

REACTIONS (8)
  - Incision site haemorrhage [Unknown]
  - Peripheral swelling [Unknown]
  - Contusion [Unknown]
  - Post procedural discharge [Unknown]
  - Muscle spasms [Unknown]
  - Insomnia [Unknown]
  - Arthralgia [Unknown]
  - Pain in extremity [Unknown]

NARRATIVE: CASE EVENT DATE: 20150207
